FAERS Safety Report 5331923-7 (Version None)
Quarter: 2007Q2

REPORT INFORMATION
  Report Type: 
  Country: None (occurrence: None)
  Receive Date: 20070521
  Receipt Date: 20070508
  Transmission Date: 20071010
  Serious: Yes (Hospitalization)
  Sender: FDA-Public Use
  Company Number: 2007BI006344

PATIENT
  Age: 63 Year
  Sex: Male

DRUGS (8)
  1. NATALIZUMAB [Suspect]
     Indication: MULTIPLE SCLEROSIS
     Dosage: 300 MG;QM;IV
     Route: 042
     Dates: start: 20061116, end: 20070201
  2. LIPITOR [Concomitant]
  3. PROVIGIL [Concomitant]
  4. ASCORBIC ACID [Concomitant]
  5. DULCOLAX [Concomitant]
  6. VICODIN ES [Concomitant]
  7. THIOLA [Concomitant]
  8. MECLIZINE [Concomitant]

REACTIONS (4)
  - FALL [None]
  - PYREXIA [None]
  - RENAL FAILURE [None]
  - SPINAL COMPRESSION FRACTURE [None]
